FAERS Safety Report 23402581 (Version 1)
Quarter: 2024Q1

REPORT INFORMATION
  Report Type: Spontaneous
  Country: US (occurrence: US)
  Receive Date: 20240115
  Receipt Date: 20240115
  Transmission Date: 20240410
  Serious: No
  Sender: FDA-Public Use
  Company Number: US-PERRIGO-23US007031

PATIENT

DRUGS (1)
  1. IBUPROFEN [Suspect]
     Active Substance: IBUPROFEN
     Indication: Product administered to patient of inappropriate age
     Dosage: A DROP, SINGLE
     Route: 048
     Dates: start: 202306, end: 202306

REACTIONS (4)
  - Hypoaesthesia oral [Unknown]
  - Pharyngeal paraesthesia [Unknown]
  - Cough [Unknown]
  - Throat irritation [Unknown]

NARRATIVE: CASE EVENT DATE: 20230601
